FAERS Safety Report 9529852 (Version 1)
Quarter: 2013Q3

REPORT INFORMATION
  Report Type: Spontaneous
  Country: US (occurrence: US)
  Receive Date: 20130917
  Receipt Date: 20130917
  Transmission Date: 20140515
  Serious: No
  Sender: FDA-Public Use
  Company Number: US-PFIZER INC-2013265753

PATIENT
  Age: 37 Year
  Sex: Male

DRUGS (7)
  1. XELJANZ [Suspect]
     Dosage: 5 MG 1 TABLET, 2X/DAY
     Dates: start: 201305
  2. METHADONE HCL [Concomitant]
     Dosage: 10 MG
  3. PREDNISONE [Concomitant]
     Dosage: 5 MG
  4. NEURONTIN [Concomitant]
     Dosage: 300 MG
  5. TRAZODONE [Concomitant]
     Dosage: 50 MG
  6. KEPPRA [Concomitant]
     Dosage: 500 MG
  7. PERCOCET [Concomitant]
     Dosage: OXYCODONE HYDROCHLORIDE (10MG)/ PARACETAMOL (325MG)

REACTIONS (1)
  - Diarrhoea [Unknown]
